FAERS Safety Report 5892223-X (Version None)
Quarter: 2008Q3

REPORT INFORMATION
  Report Type: 
  Country: None (occurrence: None)
  Receive Date: 20080918
  Receipt Date: 20060928
  Transmission Date: 20090109
  Serious: Yes (Hospitalization)
  Sender: FDA-Public Use
  Company Number: 2006-00898FE

PATIENT
  Age: 3 Year
  Sex: Male

DRUGS (4)
  1. MINIRIN [Suspect]
     Indication: DIABETES INSIPIDUS
     Dosage: 3 TABLET(S); PO
     Route: 048
  2. NORDITROPIN [Suspect]
     Indication: HYPOPITUITARISM
     Dosage: 0.3 MG; SC
     Route: 058
     Dates: start: 20051108, end: 20060721
  3. L-THYROXINE (L-THYROXINE /00068001/) [Suspect]
     Indication: HYPOPITUITARISM
     Dosage: PO
     Route: 048
  4. HYDROCORTISONE [Suspect]
     Indication: HYPOPITUITARISM
     Dosage: PO
     Route: 048

REACTIONS (1)
  - NEOPLASM PROGRESSION [None]
